FAERS Safety Report 4377494-3 (Version None)
Quarter: 2004Q2

REPORT INFORMATION
  Report Type: 
  Country: None (occurrence: None)
  Receive Date: 20040602
  Receipt Date: 20031001
  Transmission Date: 20050107
  Serious: Yes (Hospitalization)
  Sender: FDA-Public Use
  Company Number: NSADSS2001031919

PATIENT
  Age: 43 Year
  Sex: Female
  Weight: 79.3795 kg

DRUGS (13)
  1. PROPULSID [Suspect]
     Indication: GASTROOESOPHAGEAL REFLUX DISEASE
     Dosage: 10 MG, 4 IN 1 DAY, ORAL
     Route: 048
     Dates: start: 19970102, end: 19991011
  2. BIAXIN [Concomitant]
  3. CIPRO [Concomitant]
  4. ERYTHROCIN [Concomitant]
  5. ZOLOFT [Concomitant]
  6. CARDIZEM [Concomitant]
  7. NORVASC [Concomitant]
  8. DYAZIDE [Concomitant]
  9. LASIX [Concomitant]
  10. PLENDIL [Concomitant]
  11. ALUPENT [Concomitant]
  12. PRILOSEC [Concomitant]
  13. CLARITIN [Concomitant]

REACTIONS (3)
  - CHEST PAIN [None]
  - LOSS OF CONSCIOUSNESS [None]
  - MEDICATION ERROR [None]
